FAERS Safety Report 23140027 (Version 2)
Quarter: 2023Q4

REPORT INFORMATION
  Report Type: Spontaneous
  Country: US (occurrence: US)
  Receive Date: 20231102
  Receipt Date: 20231218
  Transmission Date: 20240110
  Serious: No
  Sender: FDA-Public Use
  Company Number: US-PFIZER INC-2021612903

PATIENT
  Age: 67 Year
  Sex: Male

DRUGS (1)
  1. TIKOSYN [Suspect]
     Active Substance: DOFETILIDE
     Dosage: UNK, 2X/DAY (ONE IN THE MORNING AND ONE AT THE NIGHT)

REACTIONS (3)
  - Dysphonia [Unknown]
  - Product prescribing error [Unknown]
  - Product dispensing error [Unknown]
